FAERS Safety Report 5872682-9 (Version None)
Quarter: 2008Q3

REPORT INFORMATION
  Report Type: 
  Country: None (occurrence: None)
  Receive Date: 20080905
  Receipt Date: 20080829
  Transmission Date: 20090109
  Serious: Yes (Hospitalization)
  Sender: FDA-Public Use
  Company Number: US-ABBOTT-08P-163-0473075-00

PATIENT
  Sex: Female
  Weight: 90.8 kg

DRUGS (6)
  1. DEPAKOTE [Suspect]
     Indication: CONVULSION
     Route: 048
     Dates: start: 20030101, end: 20030101
  2. DEPAKOTE [Suspect]
     Route: 048
     Dates: start: 20000101, end: 20030101
  3. PHENYTOIN [Interacting]
     Indication: CONVULSION
     Dosage: FEW MONTHS BEFORE STARTING DEPAKOTE
     Route: 048
     Dates: start: 20000101
  4. PAROXETINE HCL [Concomitant]
     Indication: DEPRESSION
     Route: 048
     Dates: start: 20060101
  5. PAROXETINE HCL [Concomitant]
     Indication: ANXIETY
  6. SUMATRIPTAN SUCCINATE [Concomitant]
     Indication: MIGRAINE
     Route: 048
     Dates: start: 20030101

REACTIONS (3)
  - DRUG INTERACTION [None]
  - MYOCARDIAL INFARCTION [None]
  - SWELLING [None]
